FAERS Safety Report 5224756-3 (Version None)
Quarter: 2007Q1

REPORT INFORMATION
  Report Type: 
  Country: None (occurrence: None)
  Receive Date: 20070129
  Receipt Date: 20070129
  Transmission Date: 20070707
  Serious: Yes (Other)
  Sender: FDA-Public Use
  Company Number: None

PATIENT
  Age: 30 Year
  Sex: Female
  Weight: 79.3795 kg

DRUGS (3)
  1. ZICAM NO DRIP LIQUID NASAL GEL ZINCUM GLUCONICUM 2X ZICAM 11C,  MATRIX [Suspect]
     Indication: NASOPHARYNGITIS
     Dosage: 1 SPRAY EACH NOSTRIL JUST ONCE NASAL
     Route: 045
     Dates: end: 20070126
  2. ZICAM NO DRIP LIQUID NASAL GEL ZINCUM GLUCONICUM 2X ZICAM 11C,  MATRIX [Suspect]
     Indication: PHARYNGOLARYNGEAL PAIN
     Dosage: 1 SPRAY EACH NOSTRIL JUST ONCE NASAL
     Route: 045
     Dates: end: 20070126
  3. ZICAM NO DRIP LIQUID NASAL GEL ZINCUM GLUCONICUM 2X ZICAM 11C,  MATRIX [Suspect]
     Indication: POSTNASAL DRIP
     Dosage: 1 SPRAY EACH NOSTRIL JUST ONCE NASAL
     Route: 045
     Dates: end: 20070126

REACTIONS (8)
  - AGEUSIA [None]
  - ANOSMIA [None]
  - EYE IRRITATION [None]
  - EYE PAIN [None]
  - LACRIMATION INCREASED [None]
  - MIGRAINE [None]
  - OCULAR HYPERAEMIA [None]
  - RHINALGIA [None]
